FAERS Safety Report 10866157 (Version 1)
Quarter: 2015Q1

REPORT INFORMATION
  Report Type: Spontaneous
  Country: US (occurrence: None)
  Receive Date: 20150219
  Receipt Date: 20150219
  Transmission Date: 20150721
  Serious: Yes (Life-Threatening, Hospitalization, Disabling, Other)
  Sender: FDA-Public Use
  Company Number: None

PATIENT
  Age: 76 Year
  Sex: Male

DRUGS (1)
  1. MUNCIPAL WATER PHARMACEUTICALLY COMPOUNDED WITH FLUORINE [Suspect]
     Active Substance: FLUORINE
     Indication: DENTAL DISORDER PROPHYLAXIS
     Dates: start: 20010801

REACTIONS (5)
  - Multiple fractures [None]
  - Fall [None]
  - Rib fracture [None]
  - Foot fracture [None]
  - Osteogenesis imperfecta [None]

NARRATIVE: CASE EVENT DATE: 201409
